FAERS Safety Report 9680766 (Version 2)
Quarter: 2014Q1

REPORT INFORMATION
  Report Type: Spontaneous
  Country: US (occurrence: US)
  Receive Date: 20131111
  Receipt Date: 20140121
  Transmission Date: 20141002
  Serious: Yes (Hospitalization, Other)
  Sender: FDA-Public Use
  Company Number: US-JNJFOC-20131100997

PATIENT
  Age: 75 Year
  Sex: Female

DRUGS (8)
  1. STELARA [Suspect]
     Indication: PSORIASIS
     Dosage: WEEK-0
     Route: 058
     Dates: start: 20130821
  2. STELARA [Suspect]
     Indication: PSORIASIS
     Dosage: WEEK-4
     Route: 058
     Dates: start: 20130919
  3. STELARA [Suspect]
     Indication: PSORIASIS
     Dosage: WEEK-17
     Route: 058
     Dates: start: 20131216
  4. FLUOCINONIDE [Concomitant]
     Dosage: QD
     Route: 061
     Dates: start: 20121214
  5. METHOTREXATE [Concomitant]
     Route: 048
     Dates: start: 2000, end: 20130808
  6. METOPROLOL [Concomitant]
     Route: 065
     Dates: start: 201309
  7. PLAVIX [Concomitant]
     Route: 065
     Dates: start: 201309
  8. MULTIVITAMINS [Concomitant]
     Dosage: YEARS
     Route: 065

REACTIONS (2)
  - Myocardial infarction [Recovered/Resolved]
  - Hypertension [Recovering/Resolving]
